FAERS Safety Report 20131492 (Version 1)
Quarter: 2021Q4

REPORT INFORMATION
  Report Type: Report from Study
  Country: ES (occurrence: ES)
  Receive Date: 20211130
  Receipt Date: 20211130
  Transmission Date: 20220303
  Serious: Yes (Hospitalization)
  Sender: FDA-Public Use
  Company Number: None

PATIENT
  Age: 77 Year
  Sex: Male

DRUGS (3)
  1. ZOLPIDEM TARTRATE [Interacting]
     Active Substance: ZOLPIDEM TARTRATE
     Dosage: ZOLPIDEM HEMITARTRATE (2429VS)
     Route: 065
     Dates: start: 20200706, end: 20200706
  2. QUETIAPINE [Interacting]
     Active Substance: QUETIAPINE
     Dosage: QUETIAPINE (1136A)
     Route: 065
     Dates: start: 20200706
  3. DIVALPROEX SODIUM [Interacting]
     Active Substance: DIVALPROEX SODIUM
     Dosage: VALPROATE SEMISODIUM (3194RZ)
     Route: 065
     Dates: start: 20200706

REACTIONS (4)
  - Toxicity to various agents [Recovered/Resolved]
  - Depressed level of consciousness [Recovered/Resolved]
  - Language disorder [Recovered/Resolved]
  - Drug interaction [Unknown]

NARRATIVE: CASE EVENT DATE: 20200707
